FAERS Safety Report 5408140-5 (Version None)
Quarter: 2007Q3

REPORT INFORMATION
  Report Type: 
  Country: None (occurrence: None)
  Receive Date: 20070806
  Receipt Date: 20070723
  Transmission Date: 20080115
  Serious: Yes (Hospitalization)
  Sender: FDA-Public Use
  Company Number: FABR-12084

PATIENT
  Age: 46 Year
  Sex: Male
  Weight: 60 kg

DRUGS (1)
  1. FABRAZYME [Suspect]
     Indication: FABRY'S DISEASE
     Dosage: 1 MG/KG Q2WKS IV
     Route: 042
     Dates: start: 20040826

REACTIONS (5)
  - ANAEMIA [None]
  - CARDIOMEGALY [None]
  - DILATATION VENTRICULAR [None]
  - RENAL FAILURE [None]
  - RENAL TRANSPLANT [None]
